FAERS Safety Report 9342843 (Version 1)
Quarter: 2013Q2

REPORT INFORMATION
  Report Type: Spontaneous
  Country: US (occurrence: US)
  Receive Date: 20130611
  Receipt Date: 20130611
  Transmission Date: 20140414
  Serious: Yes (Disabling)
  Sender: FDA-Public Use
  Company Number: US-GLAXOSMITHKLINE-A1025845A

PATIENT
  Age: 48 Year
  Sex: Female

DRUGS (3)
  1. VOTRIENT [Suspect]
     Indication: PRODUCT USED FOR UNKNOWN INDICATION
     Dosage: 400MG TWICE PER DAY
     Route: 048
     Dates: start: 20130314
  2. VITAMIN B12 [Concomitant]
  3. BLOOD PRESSURE MEDICATION [Concomitant]

REACTIONS (4)
  - Nausea [Not Recovered/Not Resolved]
  - Vomiting [Not Recovered/Not Resolved]
  - Decreased appetite [Not Recovered/Not Resolved]
  - Hyperaesthesia [Not Recovered/Not Resolved]
